FAERS Safety Report 8377481-4 (Version None)
Quarter: 2012Q2

REPORT INFORMATION
  Report Type: 
  Country: None (occurrence: None)
  Receive Date: 20120522
  Receipt Date: 20110802
  Transmission Date: 20120825
  Serious: No
  Sender: FDA-Public Use
  Company Number: US-ASTRAZENECA-2011SE36789

PATIENT
  Age: 64 Year
  Sex: Female

DRUGS (2)
  1. PREVACID [Suspect]
  2. PRILOSEC [Suspect]
     Route: 048

REACTIONS (3)
  - HEADACHE [None]
  - DRUG EFFECT DECREASED [None]
  - ADVERSE DRUG REACTION [None]
